FAERS Safety Report 15760480 (Version 1)
Quarter: 2018Q4

REPORT INFORMATION
  Report Type: Spontaneous
  Country: US (occurrence: US)
  Receive Date: 20181226
  Receipt Date: 20181226
  Transmission Date: 20190205
  Serious: No
  Sender: FDA-Public Use
  Company Number: US-ABBVIE-18S-163-2275684-00

PATIENT
  Age: 1 Year
  Sex: Male

DRUGS (1)
  1. KLARICID [Suspect]
     Active Substance: CLARITHROMYCIN
     Indication: PRODUCT USED FOR UNKNOWN INDICATION
     Dosage: 125 MG/5 ML
     Route: 048
     Dates: start: 20171120

REACTIONS (2)
  - Wrong technique in product usage process [Unknown]
  - Vomiting [Unknown]

NARRATIVE: CASE EVENT DATE: 20171120
